FAERS Safety Report 6750571-5 (Version None)
Quarter: 2010Q2

REPORT INFORMATION
  Report Type: 
  Country: None (occurrence: None)
  Receive Date: 20100528
  Receipt Date: 20100528
  Transmission Date: 20101027
  Serious: Yes (Life-Threatening)
  Sender: FDA-Public Use
  Company Number: None

PATIENT
  Age: 24 Year
  Sex: Female
  Weight: 99.7913 kg

DRUGS (1)
  1. NUVARING [Suspect]
     Indication: CONTRACEPTION
     Dates: start: 20080412, end: 20091124

REACTIONS (6)
  - APPARENT DEATH [None]
  - GAIT DISTURBANCE [None]
  - INFERTILITY FEMALE [None]
  - INTRACARDIAC THROMBUS [None]
  - PULMONARY THROMBOSIS [None]
  - THROMBOSIS [None]
